FAERS Safety Report 21495494 (Version 2)
Quarter: 2022Q4

REPORT INFORMATION
  Report Type: Spontaneous
  Country: US (occurrence: US)
  Receive Date: 20221022
  Receipt Date: 20221028
  Transmission Date: 20230112
  Serious: No
  Sender: FDA-Public Use
  Company Number: US-NOVARTISTESTPH-NVSC2022US237315

PATIENT
  Sex: Female

DRUGS (1)
  1. LEQVIO [Suspect]
     Active Substance: INCLISIRAN SODIUM
     Indication: Product used for unknown indication
     Dosage: 284 MG (1, 3 THEN 6 MONTHS)
     Route: 058
     Dates: start: 20220701

REACTIONS (3)
  - Nasopharyngitis [Unknown]
  - Influenza like illness [Unknown]
  - Injection site irritation [Unknown]
